FAERS Safety Report 9057801 (Version 1)
Quarter: 2013Q1

REPORT INFORMATION
  Report Type: Spontaneous
  Country: DK (occurrence: None)
  Receive Date: 20130117
  Receipt Date: 20130117
  Transmission Date: 20140127
  Serious: Yes (Hospitalization)
  Sender: FDA-Public Use
  Company Number: 2013MA000460

PATIENT
  Age: 11 Year
  Sex: Male

DRUGS (2)
  1. FEVERALL [Suspect]
     Indication: OROPHARYNGEAL PAIN
     Route: 048
     Dates: start: 20130101, end: 20130104
  2. KETOPROFEN [Suspect]
     Indication: UPPER RESPIRATORY TRACT INFECTION
     Dosage: TOTAL DOSE
     Route: 048
     Dates: start: 20121231, end: 20130101

REACTIONS (2)
  - Gastric ulcer [None]
  - Melaena [None]
